FAERS Safety Report 9653529 (Version 7)
Quarter: 2014Q2

REPORT INFORMATION
  Report Type: Spontaneous
  Country: US (occurrence: None)
  Receive Date: 20131028
  Receipt Date: 20140626
  Transmission Date: 20141212
  Serious: Yes (Hospitalization)
  Sender: FDA-Public Use
  Company Number: IPC201310-000402

PATIENT
  Age: 53 Year
  Sex: Female
  Weight: 108 kg

DRUGS (29)
  1. METOPROLOL TARTRATE [Suspect]
     Indication: PALPITATIONS
     Route: 048
     Dates: start: 20030424
  2. METOPROLOL TARTRATE [Suspect]
     Indication: BLOOD PRESSURE
     Route: 048
     Dates: start: 20030424
  3. BENAZEPRIL + HYDROCHLOROTHIAZIDE [Suspect]
     Indication: BLOOD PRESSURE
     Route: 048
     Dates: start: 20101011, end: 20130907
  4. LUNESTA [Concomitant]
  5. NEXIUM (ESOMEPRAZOLE) [Concomitant]
  6. CRESTOR (ROSUVASTATIN) [Concomitant]
  7. ASPIRIN (ASPIRIN) [Concomitant]
  8. LEXAPRO (ESCITALOPRAM OXALATE) [Concomitant]
  9. BENADRYL (DIPHENHYDRAMINE) [Concomitant]
  10. ZYRTEC (CETIRIZINE) [Concomitant]
  11. OMNICEF (CEFDINIR) [Concomitant]
  12. LASIX (FUROSEMIDE) [Concomitant]
  13. PEPCID (FAMOTIDINE) [Concomitant]
  14. NORVASC (AMLODIPINE) [Concomitant]
  15. K-DUR 20 (POTASSIUM CHLORIDE) [Concomitant]
  16. DELTASONE (PREDNISONE) [Concomitant]
  17. CLEOCIN (CLINDAMYCIN) [Concomitant]
  18. EPIPEN (EPINEPHRINE) [Concomitant]
  19. FERROUS SULFATE (FERROUS SULFATE) [Concomitant]
  20. FLAGYL  (METRONIDAZOLE) [Concomitant]
  21. THERAGRAN [Concomitant]
  22. PROVENTIL (ALBUTEROL) [Concomitant]
  23. DIPRIVAN (PROPOFOL) [Concomitant]
  24. ZOFRAN (ONDANSETRON) [Concomitant]
  25. DELTASONE (PREDNISONE) [Concomitant]
  26. PEPCID (FAMOTIDINE) [Concomitant]
  27. ZYRTEC (CETIRIZINE) [Concomitant]
  28. CELEXA [Concomitant]
  29. CELEXA [Concomitant]

REACTIONS (21)
  - Swollen tongue [None]
  - Pneumonia [None]
  - Drug hypersensitivity [None]
  - Heart rate decreased [None]
  - Blood pressure decreased [None]
  - Angioedema [None]
  - Coma [None]
  - Unevaluable event [None]
  - Pneumonia [None]
  - Atelectasis [None]
  - Pneumonia aspiration [None]
  - No reaction on previous exposure to drug [None]
  - Oedema peripheral [None]
  - Vaginal infection [None]
  - Urinary tract infection [None]
  - Inappropriate schedule of drug administration [None]
  - No therapeutic response [None]
  - Blood pressure systolic increased [None]
  - Dysphonia [None]
  - Anxiety [None]
  - Drooling [None]
